FAERS Safety Report 12899956 (Version 3)
Quarter: 2016Q4

REPORT INFORMATION
  Report Type: Spontaneous
  Country: CA (occurrence: CA)
  Receive Date: 20161101
  Receipt Date: 20161208
  Transmission Date: 20170207
  Serious: Yes (Other)
  Sender: FDA-Public Use
  Company Number: CA-PFIZER INC-2016501011

PATIENT
  Age: 49 Year
  Sex: Female

DRUGS (4)
  1. PMS-PREGABALIN [Suspect]
     Active Substance: PREGABALIN
     Indication: NERVE COMPRESSION
     Dosage: 50 MG, 2X/DAY
     Route: 048
     Dates: start: 20160414, end: 20160504
  2. PMS-PREGABALIN [Suspect]
     Active Substance: PREGABALIN
     Dosage: 150 MG, 1X/DAY
     Dates: start: 201609, end: 201610
  3. PMS-PREGABALIN [Suspect]
     Active Substance: PREGABALIN
     Indication: NEURALGIA
     Dosage: 150 MG. 2X/DAY
     Route: 048
     Dates: start: 20160505
  4. PMS-PREGABALIN [Suspect]
     Active Substance: PREGABALIN
     Indication: BACK INJURY
     Dosage: 300 MG, 2X/DAY
     Dates: start: 201604, end: 201609

REACTIONS (10)
  - Thinking abnormal [Recovering/Resolving]
  - Gambling disorder [Not Recovered/Not Resolved]
  - Activities of daily living impaired [None]
  - Extra dose administered [Unknown]
  - Impaired work ability [Not Recovered/Not Resolved]
  - Cognitive disorder [Not Recovered/Not Resolved]
  - Mood swings [Not Recovered/Not Resolved]
  - Quality of life decreased [None]
  - Amnesia [Not Recovered/Not Resolved]
  - Suicidal ideation [Recovering/Resolving]

NARRATIVE: CASE EVENT DATE: 2016
